FAERS Safety Report 19193870 (Version 1)
Quarter: 2021Q2

REPORT INFORMATION
  Report Type: Spontaneous
  Country: US (occurrence: US)
  Receive Date: 20210428
  Receipt Date: 20210428
  Transmission Date: 20210717
  Serious: Yes (Life-Threatening, Hospitalization, Other)
  Sender: FDA-Public Use
  Company Number: None

PATIENT
  Age: 36 Year
  Sex: Female
  Weight: 57.15 kg

DRUGS (4)
  1. FERROUS GLUCONATE [Concomitant]
     Active Substance: FERROUS GLUCONATE
  2. TERBUTALINE [Suspect]
     Active Substance: TERBUTALINE
     Indication: PREMATURE LABOUR
     Dates: start: 20210425, end: 20210425
  3. TERBUTALINE [Suspect]
     Active Substance: TERBUTALINE
     Indication: PROPHYLAXIS
     Dates: start: 20210425, end: 20210425
  4. PRENATAL VITAMINS [Concomitant]
     Active Substance: VITAMINS

REACTIONS (10)
  - Blood pressure decreased [None]
  - Off label use [None]
  - Maternal condition affecting foetus [None]
  - Dyspnoea [None]
  - Drug monitoring procedure not performed [None]
  - Feeling hot [None]
  - Malaise [None]
  - Blindness transient [None]
  - Exposure during pregnancy [None]
  - Product administration error [None]

NARRATIVE: CASE EVENT DATE: 20210425
